FAERS Safety Report 5995250-7 (Version None)
Quarter: 2008Q4

REPORT INFORMATION
  Report Type: 
  Country: None (occurrence: None)
  Receive Date: 20081212
  Receipt Date: 20080916
  Transmission Date: 20090506
  Serious: No
  Sender: FDA-Public Use
  Company Number: US-ABBOTT-08P-163-0477673-00

PATIENT
  Sex: Male
  Weight: 86.26 kg

DRUGS (1)
  1. HUMIRA [Suspect]
     Indication: RHEUMATOID ARTHRITIS
     Route: 048
     Dates: end: 20080501

REACTIONS (5)
  - BLOOD URIC ACID INCREASED [None]
  - GOUT [None]
  - INJECTION SITE IRRITATION [None]
  - JOINT RANGE OF MOTION DECREASED [None]
  - JOINT SWELLING [None]
